FAERS Safety Report 25005109 (Version 1)
Quarter: 2025Q1

REPORT INFORMATION
  Report Type: Spontaneous
  Country: US (occurrence: None)
  Receive Date: 20250223
  Receipt Date: 20250223
  Transmission Date: 20250408
  Serious: Yes (Other)
  Sender: FDA-CTU
  Company Number: None

PATIENT
  Age: 49 Year
  Sex: Female
  Weight: 56.25 kg

DRUGS (7)
  1. VEOZAH [Suspect]
     Active Substance: FEZOLINETANT
     Indication: Hot flush
     Dosage: OTHER QUANTITY : 30 TABLET(S);?FREQUENCY : DAILY;?
     Route: 048
     Dates: start: 20250206, end: 20250213
  2. VEOZAH [Suspect]
     Active Substance: FEZOLINETANT
     Indication: Night sweats
  3. PROPRANOLOL [Suspect]
     Active Substance: PROPRANOLOL HYDROCHLORIDE
  4. CITALOPRAM [Suspect]
     Active Substance: CITALOPRAM
  5. BUSPAR [Suspect]
     Active Substance: BUSPIRONE HYDROCHLORIDE
  6. ADDERALL [Suspect]
     Active Substance: AMPHETAMINE ASPARTATE\AMPHETAMINE SULFATE\DEXTROAMPHETAMINE SACCHARATE\DEXTROAMPHETAMINE SULFATE
  7. CLONAZEPAM [Suspect]
     Active Substance: CLONAZEPAM

REACTIONS (14)
  - Drug ineffective [None]
  - Hyperhidrosis [None]
  - Anxiety [None]
  - Vertigo [None]
  - Blood pressure increased [None]
  - Heart rate increased [None]
  - Body temperature increased [None]
  - Confusional state [None]
  - Insomnia [None]
  - Limb discomfort [None]
  - Brain fog [None]
  - Muscle twitching [None]
  - Drug interaction [None]
  - Serotonin syndrome [None]

NARRATIVE: CASE EVENT DATE: 20250222
